FAERS Safety Report 25578796 (Version 1)
Quarter: 2025Q3

REPORT INFORMATION
  Report Type: Spontaneous
  Country: US (occurrence: US)
  Receive Date: 20250718
  Receipt Date: 20250718
  Transmission Date: 20251020
  Serious: No
  Sender: FRESENIUS KABI
  Company Number: US-FreseniusKabi-FK202509406

PATIENT
  Age: 30 Year
  Sex: Female

DRUGS (10)
  1. MOXIFLOXACIN [Suspect]
     Active Substance: MOXIFLOXACIN
     Indication: Mycobacterium avium complex infection
     Dates: start: 2023, end: 202311
  2. AZITHROMYCIN [Concomitant]
     Active Substance: AZITHROMYCIN
     Indication: Mycobacterium avium complex infection
     Dosage: SHE REMAINS ON CLOFAZIMINE 100 MG DAILY, AZITHROMYCIN 500 MG DAILY, OMADACYCLINE 300 MG DAILY, LINEZ
  3. RIFABUTIN [Concomitant]
     Active Substance: RIFABUTIN
     Indication: Mycobacterium avium complex infection
     Dosage: SHE REMAINS ON CLOFAZIMINE 100 MG DAILY, AZITHROMYCIN 500 MG DAILY, OMADACYCLINE 300 MG DAILY, LINEZ
  4. CLOFAZIMINE [Concomitant]
     Active Substance: CLOFAZIMINE
     Indication: Mycobacterium avium complex infection
     Dosage: SHE REMAINS ON CLOFAZIMINE 100 MG DAILY, AZITHROMYCIN 500 MG DAILY, OMADACYCLINE 300 MG DAILY, LINEZ
  5. LINEZOLID [Concomitant]
     Active Substance: LINEZOLID
     Indication: Mycobacterium avium complex infection
     Dosage: SHE REMAINS ON CLOFAZIMINE 100 MG DAILY, AZITHROMYCIN 500 MG DAILY, OMADACYCLINE 300 MG DAILY, LINEZ
  6. OMADACYCLINE [Concomitant]
     Active Substance: OMADACYCLINE
     Indication: Mycobacterium avium complex infection
     Dosage: SHE REMAINS ON CLOFAZIMINE 100 MG DAILY, AZITHROMYCIN 500 MG DAILY, OMADACYCLINE 300 MG DAILY, LINEZ
  7. MEROPENEM [Concomitant]
     Active Substance: MEROPENEM
     Indication: Mycobacterium avium complex infection
     Route: 042
     Dates: end: 202402
  8. CEFTAROLINE [Concomitant]
     Active Substance: CEFTAROLINE
     Indication: Mycobacterium avium complex infection
     Route: 042
     Dates: end: 202402
  9. PYRIDOXINE [Concomitant]
     Active Substance: PYRIDOXINE
     Indication: Mycobacterium avium complex infection
  10. AMIKACIN [Concomitant]
     Active Substance: AMIKACIN
     Indication: Mycobacterium avium complex infection

REACTIONS (1)
  - Tendon disorder [Unknown]

NARRATIVE: CASE EVENT DATE: 20230101
